FAERS Safety Report 23226315 (Version 1)
Quarter: 2023Q4

REPORT INFORMATION
  Report Type: Spontaneous
  Country: US (occurrence: None)
  Receive Date: 20231121
  Receipt Date: 20231121
  Transmission Date: 20240109
  Serious: Yes (Hospitalization)
  Sender: FDA-Public Use
  Company Number: None

PATIENT
  Age: 75 Year
  Sex: Male

DRUGS (1)
  1. SEMAGLUTIDE [Suspect]
     Active Substance: SEMAGLUTIDE
     Dosage: 1 MG QWEEK SQ
     Route: 058
     Dates: start: 20220517, end: 20231109

REACTIONS (5)
  - Intestinal obstruction [None]
  - Small intestinal obstruction [None]
  - Ileus [None]
  - Enteritis [None]
  - Product quality issue [None]

NARRATIVE: CASE EVENT DATE: 20230724
